FAERS Safety Report 6696679-4 (Version None)
Quarter: 2010Q2

REPORT INFORMATION
  Report Type: 
  Country: None (occurrence: None)
  Receive Date: 20100422
  Receipt Date: 20100409
  Transmission Date: 20101027
  Serious: Yes (Life-Threatening)
  Sender: FDA-Public Use
  Company Number: DSJ-2010-05996

PATIENT
  Age: 71 Year
  Sex: Female

DRUGS (4)
  1. OLMESARTAN MEDOXOMIL [Suspect]
     Indication: HYPERTENSION
     Dosage: 20 MG, PER ORAL; PER ORAL
     Route: 048
     Dates: start: 20090501, end: 20100209
  2. AMLODIPINE BESYLATE [Suspect]
     Indication: HYPERTENSION
     Dosage: 5 MG, PER ORAL; PER ORAL
     Route: 048
     Dates: start: 20090101, end: 20100209
  3. SHAKUYAKU-KANZO-TO (HERBAL EXTRACT NOS) (GRANULES) (HERBAL EXTRACT NOS [Suspect]
     Indication: MYALGIA
     Dosage: 7.5 GM, PER ORAL; PER ORAL
     Route: 048
     Dates: start: 20090925, end: 20100209
  4. ZALTOPROFEN (ZALTOPROFEN) (TABLET) (ZALTOPROFEN) [Suspect]
     Indication: ARTHRALGIA
     Dosage: 80 MG, PER ORAL
     Route: 048
     Dates: end: 20100209

REACTIONS (2)
  - ANAPHYLACTIC SHOCK [None]
  - PRODUCT SUBSTITUTION ISSUE [None]
